FAERS Safety Report 17971325 (Version 2)
Quarter: 2020Q3

REPORT INFORMATION
  Report Type: Spontaneous
  Country: JP (occurrence: JP)
  Receive Date: 20200701
  Receipt Date: 20200902
  Transmission Date: 20201103
  Serious: Yes (Other)
  Sender: FDA-Public Use
  Company Number: JP-BRISTOL-MYERS SQUIBB COMPANY-BMS-2020-052250

PATIENT
  Age: 85 Year

DRUGS (1)
  1. OPDIVO [Suspect]
     Active Substance: NIVOLUMAB
     Indication: PRODUCT USED FOR UNKNOWN INDICATION
     Dosage: UNK
     Route: 041

REACTIONS (22)
  - Gastric stenosis [Unknown]
  - Pain [Unknown]
  - Chest pain [Unknown]
  - Sense of oppression [Unknown]
  - Vomiting [Unknown]
  - Pruritus [Unknown]
  - Chromaturia [Unknown]
  - Chills [Unknown]
  - Cough [Unknown]
  - Frequent bowel movements [Unknown]
  - Malaise [Unknown]
  - Nausea [Unknown]
  - Myalgia [Unknown]
  - Fatigue [Unknown]
  - Akinesia [Unknown]
  - Urine output decreased [Unknown]
  - Renal function test abnormal [Unknown]
  - Pulse abnormal [Unknown]
  - Physical deconditioning [Unknown]
  - Palpitations [Unknown]
  - Muscular weakness [Unknown]
  - Liver function test abnormal [Unknown]

NARRATIVE: CASE EVENT DATE: 20200621
